FAERS Safety Report 24414672 (Version 3)
Quarter: 2024Q4

REPORT INFORMATION
  Report Type: Spontaneous
  Country: US (occurrence: US)
  Receive Date: 20241009
  Receipt Date: 20241015
  Transmission Date: 20250115
  Serious: Yes (Other)
  Sender: ABBVIE
  Company Number: US-ABBVIE-5954353

PATIENT
  Sex: Male

DRUGS (2)
  1. SKYRIZI [Suspect]
     Active Substance: RISANKIZUMAB-RZAA
     Indication: Psoriasis
     Route: 058
     Dates: start: 20240530
  2. SKYRIZI [Suspect]
     Active Substance: RISANKIZUMAB-RZAA
     Dosage: LAST ADMIN DATE : 2024, SECOND DOSE?FREQUENCY TEXT: UNKNOWN
     Route: 058
     Dates: start: 20240628

REACTIONS (4)
  - Coronary artery bypass [Unknown]
  - Pain [Unknown]
  - Muscle spasms [Unknown]
  - Cytokine storm [Unknown]

NARRATIVE: CASE EVENT DATE: 20240101
